FAERS Safety Report 15535343 (Version 1)
Quarter: 2018Q4

REPORT INFORMATION
  Report Type: Spontaneous
  Country: US (occurrence: US)
  Receive Date: 20181020
  Receipt Date: 20181020
  Transmission Date: 20190205
  Serious: Yes (Other)
  Sender: FDA-Public Use
  Company Number: None

PATIENT
  Age: 17 Year
  Sex: Female
  Weight: 56.25 kg

DRUGS (4)
  1. H1 AND H2 BLOCKERS [Concomitant]
  2. ZYRTEC [Concomitant]
     Active Substance: CETIRIZINE HYDROCHLORIDE
  3. BENADRYL [Suspect]
     Active Substance: DIPHENHYDRAMINE HYDROCHLORIDE
     Indication: HYPERSENSITIVITY
     Route: 048
     Dates: start: 20181010, end: 20181020
  4. PEPCID [Concomitant]
     Active Substance: FAMOTIDINE

REACTIONS (2)
  - Burning sensation [None]
  - Throat irritation [None]

NARRATIVE: CASE EVENT DATE: 20181015
